FAERS Safety Report 4886527-7 (Version None)
Quarter: 2006Q1

REPORT INFORMATION
  Report Type: 
  Country: None (occurrence: None)
  Receive Date: 20060120
  Receipt Date: 20060112
  Transmission Date: 20060701
  Serious: Yes (Other)
  Sender: FDA-Public Use
  Company Number: US-AVENTIS-200610525US

PATIENT
  Sex: Female

DRUGS (11)
  1. LANTUS [Suspect]
     Indication: DIABETES MELLITUS NON-INSULIN-DEPENDENT
     Dosage: DOSE UNIT: UNITS
     Dates: start: 20040101, end: 20051001
  2. LANTUS [Suspect]
     Dosage: DOSE UNIT: UNITS
     Dates: start: 20060112
  3. OPTICLIK (INSULIN INJECTION PEN) [Suspect]
     Indication: DIABETES MELLITUS NON-INSULIN-DEPENDENT
     Dosage: DOSE: UNKNOWN
     Dates: start: 20050501, end: 20051001
  4. OPTICLIK (INSULIN INJECTION PEN) [Suspect]
     Dosage: DOSE: UNKNOWN
     Dates: start: 20060112
  5. PRANDIN [Concomitant]
     Dosage: DOSE: UNKNOWN
  6. ACTOS [Concomitant]
  7. PHOSLO [Concomitant]
     Dosage: DOSE: UNKNOWN
  8. TORSEMIDE [Concomitant]
     Dosage: DOSE: UNKNOWN
  9. MOBIC [Concomitant]
     Dosage: DOSE: UNKNOWN
  10. ZETIA                                   /USA/ [Concomitant]
     Dosage: DOSE: UNKNOWN
  11. TOPROL-XL [Concomitant]
     Dosage: DOSE: UNKNOWN

REACTIONS (4)
  - ANOREXIA [None]
  - BLOOD GLUCOSE INCREASED [None]
  - DIALYSIS [None]
  - RENAL FAILURE [None]
